FAERS Safety Report 20278906 (Version 1)
Quarter: 2022Q1

REPORT INFORMATION
  Report Type: Spontaneous
  Country: JP (occurrence: JP)
  Receive Date: 20220103
  Receipt Date: 20220103
  Transmission Date: 20220423
  Serious: Yes (Hospitalization)
  Sender: FDA-Public Use
  Company Number: JP-JNJFOC-20211100175

PATIENT
  Age: 87 Year
  Sex: Male

DRUGS (1)
  1. ERLEADA [Suspect]
     Active Substance: APALUTAMIDE
     Indication: Prostate cancer
     Route: 048

REACTIONS (4)
  - Fracture [Recovered/Resolved]
  - Fracture [Unknown]
  - Fracture [Unknown]
  - Fracture [Unknown]

NARRATIVE: CASE EVENT DATE: 20211003
